FAERS Safety Report 10909816 (Version 1)
Quarter: 2015Q1

REPORT INFORMATION
  Report Type: Spontaneous
  Country: US (occurrence: US)
  Receive Date: 20150312
  Receipt Date: 20150312
  Transmission Date: 20150721
  Serious: No
  Sender: FDA-Public Use
  Company Number: US-SA-2015SA018190

PATIENT
  Age: 31 Year
  Sex: Male

DRUGS (2)
  1. NASACORT ALLERGY 24HR [Suspect]
     Active Substance: TRIAMCINOLONE ACETONIDE
     Dosage: START DATE: ABOUT 3 WEEKS?DOSE: 60 SPRAYS
     Route: 065
  2. NASACORT ALLERGY 24HR [Suspect]
     Active Substance: TRIAMCINOLONE ACETONIDE
     Dosage: START DATE: ABOUT 3 WEEKS?DOSE: 60 SPRAYS
     Route: 065

REACTIONS (3)
  - Dry throat [Unknown]
  - Drug ineffective [Unknown]
  - Oropharyngeal pain [Unknown]
